FAERS Safety Report 17488852 (Version 1)
Quarter: 2020Q1

REPORT INFORMATION
  Report Type: Spontaneous
  Country: US (occurrence: US)
  Receive Date: 20200303
  Receipt Date: 20200303
  Transmission Date: 20200409
  Serious: Yes (Life-Threatening, Hospitalization)
  Sender: FDA-Public Use
  Company Number: None

PATIENT
  Age: 68 Year
  Sex: Male
  Weight: 108 kg

DRUGS (9)
  1. FERROUS SULFATE. [Concomitant]
     Active Substance: FERROUS SULFATE
  2. VITAMIN C [Concomitant]
     Active Substance: ASCORBIC ACID
  3. FLUTICASONE PROPIONATE NASAL SPRAY [Concomitant]
     Active Substance: FLUTICASONE PROPIONATE
  4. XARELTO [Concomitant]
     Active Substance: RIVAROXABAN
  5. CLINDAMYCIN HCL 300MG CAPSULE [Suspect]
     Active Substance: CLINDAMYCIN HYDROCHLORIDE
     Indication: ANTIBIOTIC THERAPY
     Dosage: ?          QUANTITY:40 CAPSULE(S);?
     Route: 048
     Dates: start: 20200219, end: 20200226
  6. WIXELA INHUB [Concomitant]
     Active Substance: FLUTICASONE PROPIONATE\SALMETEROL XINAFOATE
  7. SPIRIVA RESPIMAT [Concomitant]
     Active Substance: TIOTROPIUM BROMIDE
  8. PROVENTIL [Concomitant]
     Active Substance: ALBUTEROL
  9. METOPROLOL. [Concomitant]
     Active Substance: METOPROLOL

REACTIONS (11)
  - Hypotension [None]
  - Blood pressure immeasurable [None]
  - Transfusion [None]
  - Diarrhoea [None]
  - Pyrexia [None]
  - Atrial fibrillation [None]
  - Haematochezia [None]
  - Haemorrhage [None]
  - Procedural pain [None]
  - Dizziness [None]
  - Cardioversion [None]

NARRATIVE: CASE EVENT DATE: 20200226
